FAERS Safety Report 9095367 (Version 1)
Quarter: 2013Q1

REPORT INFORMATION
  Report Type: Spontaneous
  Country: US (occurrence: US)
  Receive Date: 20130201
  Receipt Date: 20130201
  Transmission Date: 20140127
  Serious: No
  Sender: FDA-Public Use
  Company Number: US-009507513-1301USA011519

PATIENT
  Sex: Male

DRUGS (5)
  1. VICTRELIS [Suspect]
     Indication: HEPATITIS C
     Dosage: 200 MG CAPSULE, 4 CAPSULES EVERY 7-9 HOURS
     Route: 048
     Dates: start: 20120803
  2. PEGASYS [Suspect]
  3. RIBAPAK [Suspect]
  4. PRILOSEC [Concomitant]
  5. CELEXA [Concomitant]

REACTIONS (3)
  - Thyroid disorder [Unknown]
  - White blood cell count decreased [Unknown]
  - Red blood cell count decreased [Unknown]
